FAERS Safety Report 6102989-1 (Version None)
Quarter: 2009Q1

REPORT INFORMATION
  Report Type: 
  Country: None (occurrence: None)
  Receive Date: 20090305
  Receipt Date: 20090224
  Transmission Date: 20090719
  Serious: Yes (Other)
  Sender: FDA-Public Use
  Company Number: PHHY2009GB05407

PATIENT

DRUGS (1)
  1. FEMARA [Suspect]
     Dosage: 25 MG, QD

REACTIONS (1)
  - DYSPHAGIA [None]
